FAERS Safety Report 5442848-0 (Version None)
Quarter: 2007Q3

REPORT INFORMATION
  Report Type: 
  Country: None (occurrence: None)
  Receive Date: 20070830
  Receipt Date: 20070816
  Transmission Date: 20080115
  Serious: Yes (Hospitalization)
  Sender: FDA-Public Use
  Company Number: 234743K07USA

PATIENT
  Age: 52 Year
  Sex: Male

DRUGS (4)
  1. REBIF [Suspect]
     Indication: MULTIPLE SCLEROSIS
     Dosage: 22 MCG; 3 IN 1 WEEKS, SUBCUTANEOUS : 44 MCG; 3 IN 1 WEEKS, SUBCUTANEOUS
     Route: 058
     Dates: start: 20070101
  2. REBIF [Suspect]
     Indication: MULTIPLE SCLEROSIS
     Dosage: 22 MCG; 3 IN 1 WEEKS, SUBCUTANEOUS : 44 MCG; 3 IN 1 WEEKS, SUBCUTANEOUS
     Route: 058
     Dates: start: 20070216
  3. EXTRA STRENGTH TYLENOL [Concomitant]
  4. BENADRYL [Concomitant]

REACTIONS (5)
  - CALCINOSIS [None]
  - DYSPNOEA [None]
  - LYMPHADENOPATHY [None]
  - PNEUMONIA [None]
  - PULMONARY MASS [None]
